FAERS Safety Report 12406460 (Version 2)
Quarter: 2016Q2

REPORT INFORMATION
  Report Type: Spontaneous
  Country: PL (occurrence: PL)
  Receive Date: 20160526
  Receipt Date: 20160615
  Transmission Date: 20160815
  Serious: Yes (Hospitalization)
  Sender: FDA-Public Use
  Company Number: PL-009507513-1605POL010357

PATIENT
  Age: 67 Year
  Sex: Female

DRUGS (5)
  1. ATACAND [Concomitant]
     Active Substance: CANDESARTAN CILEXETIL
     Indication: BLOOD PRESSURE INCREASED
     Dosage: 4 MG DAILY
  2. NEDAL [Concomitant]
     Indication: CARDIAC DISORDER
     Dosage: UNK
  3. ZOCOR [Suspect]
     Active Substance: SIMVASTATIN
     Indication: INFARCTION
     Dosage: 10 MG, QD
     Route: 048
     Dates: start: 201409, end: 20160520
  4. ROSUCARD [Suspect]
     Active Substance: ROSUVASTATIN CALCIUM
     Dosage: 10 MG, UNK
  5. POLOCARD [Concomitant]
     Active Substance: ASPIRIN
     Dosage: UNK

REACTIONS (7)
  - Hypoaesthesia [Not Recovered/Not Resolved]
  - Muscular weakness [Not Recovered/Not Resolved]
  - Muscle tightness [Not Recovered/Not Resolved]
  - Malaise [Unknown]
  - Myalgia [Not Recovered/Not Resolved]
  - Musculoskeletal pain [Unknown]
  - Feeling abnormal [Unknown]

NARRATIVE: CASE EVENT DATE: 201409
